FAERS Safety Report 10027466 (Version 1)
Quarter: 2014Q1

REPORT INFORMATION
  Report Type: Spontaneous
  Country: IT (occurrence: None)
  Receive Date: 20140318
  Receipt Date: 20140318
  Transmission Date: 20141002
  Serious: Yes (Other)
  Sender: FDA-Public Use
  Company Number: 2235014

PATIENT
  Age: 69 Year
  Sex: Male
  Weight: 72 kg

DRUGS (2)
  1. PACLITAXEL [Suspect]
     Indication: NON-SMALL CELL LUNG CANCER
     Dosage: 275 MG MILLIGRAM(S), CYCLICAL, INTRAVENOUS DRIP
     Route: 041
     Dates: start: 20140120, end: 20140211
  2. CARBOPLATIN [Concomitant]

REACTIONS (1)
  - Hypersensitivity [None]
